FAERS Safety Report 7941057-0 (Version None)
Quarter: 2011Q4

REPORT INFORMATION
  Report Type: 
  Country: None (occurrence: None)
  Receive Date: 20111128
  Receipt Date: 20111122
  Transmission Date: 20120403
  Serious: No
  Sender: FDA-Public Use
  Company Number: US-PFIZER INC-2011286082

PATIENT
  Sex: Female
  Weight: 77.098 kg

DRUGS (1)
  1. ZMAX [Suspect]
     Indication: LOWER RESPIRATORY TRACT INFECTION
     Dosage: 2 G, DAILY
     Dates: start: 20111119, end: 20111101

REACTIONS (3)
  - DIARRHOEA [None]
  - NAUSEA [None]
  - ABDOMINAL PAIN UPPER [None]
